FAERS Safety Report 19051731 (Version 2)
Quarter: 2021Q2

REPORT INFORMATION
  Report Type: Report from Study
  Country: JP (occurrence: JP)
  Receive Date: 20210324
  Receipt Date: 20210429
  Transmission Date: 20210717
  Serious: Yes (Other)
  Sender: FDA-Public Use
  Company Number: JP-TAKEDA-2021TUS015225

PATIENT
  Age: 6 Year
  Sex: Male

DRUGS (13)
  1. ABILIFY [Concomitant]
     Active Substance: ARIPIPRAZOLE
     Dosage: 2.5 MILLIGRAM, QD
     Route: 065
     Dates: start: 20181225, end: 20191225
  2. ABILIFY [Concomitant]
     Active Substance: ARIPIPRAZOLE
     Dosage: 3.5 MILLIGRAM, QD
     Route: 065
     Dates: start: 20191226
  3. ABILIFY [Concomitant]
     Active Substance: ARIPIPRAZOLE
     Dosage: 2 MILLIGRAM, QD
     Route: 065
     Dates: start: 20180725, end: 20180820
  4. RISPERDAL [Concomitant]
     Active Substance: RISPERIDONE
     Indication: PRODUCT USED FOR UNKNOWN INDICATION
     Dosage: 1 MILLIGRAM, QD
     Route: 065
     Dates: start: 20180821, end: 20180912
  5. ABILIFY [Concomitant]
     Active Substance: ARIPIPRAZOLE
     Dosage: 1 MILLIGRAM, QD
     Route: 065
     Dates: start: 20180625, end: 20180705
  6. 503 (GUANFACINE HYDROCHLORIDE) [Suspect]
     Active Substance: GUANFACINE HYDROCHLORIDE
     Indication: ATTENTION DEFICIT HYPERACTIVITY DISORDER
     Dosage: 1 MILLIGRAM, QD
     Route: 048
     Dates: start: 20180522, end: 20180604
  7. ABILIFY [Concomitant]
     Active Substance: ARIPIPRAZOLE
     Dosage: 2 MILLIGRAM, QD
     Route: 065
     Dates: start: 20181019, end: 20181224
  8. ABILIFY [Concomitant]
     Active Substance: ARIPIPRAZOLE
     Dosage: 1.5 MILLIGRAM, QD
     Route: 065
     Dates: start: 20180706, end: 20180724
  9. ROZEREM [Concomitant]
     Active Substance: RAMELTEON
     Indication: SLEEP DISORDER
     Dosage: 2 MILLIGRAM, QD
     Route: 065
     Dates: start: 20180907, end: 20181005
  10. CONCERTA [Concomitant]
     Active Substance: METHYLPHENIDATE HYDROCHLORIDE
     Indication: ATTENTION DEFICIT HYPERACTIVITY DISORDER
     Dosage: 18 MILLIGRAM, QD
     Route: 065
     Dates: start: 20181005
  11. 503 (GUANFACINE HYDROCHLORIDE) [Suspect]
     Active Substance: GUANFACINE HYDROCHLORIDE
     Dosage: 2 MILLIGRAM, QD
     Route: 048
     Dates: start: 20180605
  12. ABILIFY [Concomitant]
     Active Substance: ARIPIPRAZOLE
     Indication: AUTISM SPECTRUM DISORDER
     Dosage: 1 MILLIGRAM, QD
     Route: 065
     Dates: start: 20180706, end: 20180724
  13. ROZEREM [Concomitant]
     Active Substance: RAMELTEON
     Dosage: 5 MILLIGRAM, QD
     Route: 065
     Dates: start: 20191025, end: 20191128

REACTIONS (2)
  - Autism spectrum disorder [Not Recovered/Not Resolved]
  - Sleep disorder [Recovered/Resolved]

NARRATIVE: CASE EVENT DATE: 20181001
